FAERS Safety Report 8262712-1 (Version None)
Quarter: 2012Q2

REPORT INFORMATION
  Report Type: 
  Country: None (occurrence: None)
  Receive Date: 20120405
  Receipt Date: 20120327
  Transmission Date: 20120825
  Serious: Yes (Hospitalization)
  Sender: FDA-Public Use
  Company Number: PHHY2008KR03523

PATIENT
  Sex: Female
  Weight: 55 kg

DRUGS (4)
  1. IMATINIB MESYLATE [Suspect]
     Dosage: 400 MG, DAILY
     Route: 048
     Dates: start: 20080301, end: 20080314
  2. DAPSONE [Suspect]
     Dosage: 100 MG, UNK
     Route: 048
     Dates: start: 20080305, end: 20080305
  3. IMATINIB MESYLATE [Suspect]
     Indication: GASTROINTESTINAL STROMAL TUMOUR
     Dosage: 400 MG, DAILY
     Route: 048
     Dates: start: 20070404, end: 20080215
  4. DAPSONE [Suspect]
     Dosage: 100 MG, UNK
     Route: 048
     Dates: start: 20080129

REACTIONS (9)
  - RASH PUSTULAR [None]
  - SCAB [None]
  - SKIN LESION [None]
  - TOXICITY TO VARIOUS AGENTS [None]
  - NEURODERMATITIS [None]
  - PAPULE [None]
  - HAEMOLYTIC ANAEMIA [None]
  - PYREXIA [None]
  - DRUG HYPERSENSITIVITY [None]
